FAERS Safety Report 8840885 (Version 1)
Quarter: 2012Q4

REPORT INFORMATION
  Report Type: 
  Country: MX (occurrence: MX)
  Receive Date: 20121015
  Receipt Date: 20121015
  Transmission Date: 20130627
  Serious: Yes (Other)
  Sender: FDA-Public Use
  Company Number: PHHY2012MX091145

PATIENT
  Sex: Female

DRUGS (2)
  1. EXFORGE [Suspect]
     Indication: HYPERTENSION
     Dosage: 1 DF (160/5mg) daily
     Dates: start: 201108
  2. METFORMIN [Concomitant]
     Indication: DIABETES MELLITUS
     Dosage: 1 DF, daily
     Dates: start: 201108

REACTIONS (4)
  - Dementia Alzheimer^s type [Not Recovered/Not Resolved]
  - Memory impairment [Not Recovered/Not Resolved]
  - Schizophrenia [Not Recovered/Not Resolved]
  - Aggression [Not Recovered/Not Resolved]
